FAERS Safety Report 12209916 (Version 2)
Quarter: 2017Q1

REPORT INFORMATION
  Report Type: Report from Study
  Country: None (occurrence: US)
  Receive Date: 20160325
  Receipt Date: 20170123
  Transmission Date: 20170428
  Serious: Yes (Hospitalization, Other)
  Sender: FDA-Public Use
  Company Number: US-ABBVIE-16K-163-1588775-00

PATIENT
  Age: 29 Year
  Sex: Male
  Weight: 64.92 kg

DRUGS (6)
  1. DOXAZOCIN [Concomitant]
     Active Substance: DOXAZOSIN MESYLATE
     Indication: PRODUCT USED FOR UNKNOWN INDICATION
  2. HUMIRA [Suspect]
     Active Substance: ADALIMUMAB
     Indication: ANKYLOSING SPONDYLITIS
     Route: 058
     Dates: start: 20160301, end: 20160301
  3. NABUMETONE. [Concomitant]
     Active Substance: NABUMETONE
     Indication: PRODUCT USED FOR UNKNOWN INDICATION
  4. HUMIRA [Suspect]
     Active Substance: ADALIMUMAB
     Route: 058
     Dates: start: 20160416
  5. METHOTREXATE. [Concomitant]
     Active Substance: METHOTREXATE
     Indication: PRODUCT USED FOR UNKNOWN INDICATION
     Route: 048
     Dates: start: 20160920
  6. FOLIC ACID. [Concomitant]
     Active Substance: FOLIC ACID
     Indication: PRODUCT USED FOR UNKNOWN INDICATION
     Route: 048
     Dates: start: 20160920

REACTIONS (10)
  - Diverticulitis [Recovered/Resolved]
  - Drug effect decreased [Unknown]
  - Gastrointestinal inflammation [Recovering/Resolving]
  - Muscle spasms [Unknown]
  - Enterovesical fistula [Recovered/Resolved]
  - Colitis [Unknown]
  - Cholecystitis [Unknown]
  - Dysuria [Recovered/Resolved]
  - Large intestine perforation [Unknown]
  - Bladder prolapse [Recovered/Resolved]

NARRATIVE: CASE EVENT DATE: 20160307
